FAERS Safety Report 10057533 (Version 1)
Quarter: 2014Q2

REPORT INFORMATION
  Report Type: Report from Study
  Country: MY (occurrence: MY)
  Receive Date: 20140404
  Receipt Date: 20140404
  Transmission Date: 20141212
  Serious: Yes (Death)
  Sender: FDA-Public Use
  Company Number: MY-ROCHE-1375629

PATIENT
  Sex: Male

DRUGS (1)
  1. TENECTEPLASE [Suspect]
     Indication: ACUTE MYOCARDIAL INFARCTION
     Dosage: SINGLE BOLUS
     Route: 065

REACTIONS (2)
  - Haemorrhage intracranial [Fatal]
  - Hypertensive emergency [Fatal]
